FAERS Safety Report 8238484-3 (Version None)
Quarter: 2012Q1

REPORT INFORMATION
  Report Type: 
  Country: None (occurrence: None)
  Receive Date: 20120327
  Receipt Date: 20120322
  Transmission Date: 20120608
  Serious: No
  Sender: FDA-Public Use
  Company Number: US-PFIZER INC-2012075258

PATIENT
  Sex: Male
  Weight: 83.9 kg

DRUGS (1)
  1. NICOTROL [Suspect]
     Indication: SMOKING CESSATION THERAPY
     Dosage: UNK, 1X/DAY
     Route: 055
     Dates: start: 20120319, end: 20120319

REACTIONS (7)
  - DYSPNOEA [None]
  - CHEST PAIN [None]
  - IRRITABILITY [None]
  - CHEST DISCOMFORT [None]
  - PRURITUS [None]
  - ANXIETY [None]
  - FATIGUE [None]
